FAERS Safety Report 7294831-0 (Version None)
Quarter: 2011Q1

REPORT INFORMATION
  Report Type: 
  Country: None (occurrence: None)
  Receive Date: 20110216
  Receipt Date: 20101217
  Transmission Date: 20110831
  Serious: Yes (Other)
  Sender: FDA-Public Use
  Company Number: US-BAYER-201023024NA

PATIENT
  Sex: Female
  Weight: 118 kg

DRUGS (4)
  1. YASMIN [Suspect]
     Indication: ORAL CONTRACEPTION
     Dosage: UNK
     Route: 048
     Dates: start: 20051018, end: 20080801
  2. YAZ [Suspect]
     Indication: PRODUCT USED FOR UNKNOWN INDICATION
     Dosage: FOUR MONTHS SUPPLY OF YAZ SAMPLES GIVEN
     Route: 048
     Dates: start: 20090113
  3. YASMIN [Suspect]
     Indication: MENOMETRORRHAGIA
     Dosage: 1 DF (DAILY DOSE), , ORAL
     Route: 048
     Dates: start: 20080401, end: 20080801
  4. NSAID'S [Concomitant]
     Dates: start: 20020801

REACTIONS (7)
  - CHOLECYSTITIS ACUTE [None]
  - CHOLELITHIASIS [None]
  - CHOLECYSTITIS CHRONIC [None]
  - GALLBLADDER PAIN [None]
  - ABDOMINAL PAIN UPPER [None]
  - BILIARY COLIC [None]
  - NAUSEA [None]
